FAERS Safety Report 9390642 (Version 1)
Quarter: 2013Q3

REPORT INFORMATION
  Report Type: Spontaneous
  Country: US (occurrence: US)
  Receive Date: 20130709
  Receipt Date: 20130709
  Transmission Date: 20140515
  Serious: No
  Sender: FDA-Public Use
  Company Number: US-BIOGENIDEC-2013BI060590

PATIENT
  Age: 51 Year
  Sex: Female

DRUGS (1)
  1. TYSABRI [Suspect]
     Indication: MULTIPLE SCLEROSIS
     Route: 042
     Dates: start: 20130225

REACTIONS (5)
  - Erythema [Recovered/Resolved]
  - Joint swelling [Recovered/Resolved]
  - Contusion [Not Recovered/Not Resolved]
  - Joint warmth [Recovered/Resolved]
  - Arthralgia [Not Recovered/Not Resolved]
